FAERS Safety Report 9375164 (Version 2)
Quarter: 2013Q3

REPORT INFORMATION
  Report Type: Spontaneous
  Country: FR (occurrence: FR)
  Receive Date: 20130628
  Receipt Date: 20130712
  Transmission Date: 20140515
  Serious: Yes (Other)
  Sender: FDA-Public Use
  Company Number: FR-JNJFOC-20130611702

PATIENT
  Age: 58 Year
  Sex: Male

DRUGS (1)
  1. HALDOL DECANOAS [Suspect]
     Indication: CHILDHOOD PSYCHOSIS
     Dosage: 6 AMPULES
     Route: 030

REACTIONS (4)
  - Delirium [Unknown]
  - Left atrial hypertrophy [Unknown]
  - Bundle branch block [Unknown]
  - Drug ineffective [Unknown]
